FAERS Safety Report 25791477 (Version 1)
Quarter: 2025Q3

REPORT INFORMATION
  Report Type: Spontaneous
  Country: US (occurrence: US)
  Receive Date: 20250911
  Receipt Date: 20250911
  Transmission Date: 20251020
  Serious: No
  Sender: FRESENIUS KABI
  Company Number: US-FreseniusKabi-FK202512255

PATIENT

DRUGS (1)
  1. TYENNE [Suspect]
     Active Substance: TOCILIZUMAB-AAZG
     Indication: Product used for unknown indication
     Route: 042

REACTIONS (1)
  - Hypoaesthesia [Unknown]
